FAERS Safety Report 7014953-9 (Version None)
Quarter: 2010Q3

REPORT INFORMATION
  Report Type: 
  Country: None (occurrence: None)
  Receive Date: 20100927
  Receipt Date: 20091028
  Transmission Date: 20110219
  Serious: No
  Sender: FDA-Public Use
  Company Number: US-ASTRAZENECA-2009SE23042

PATIENT
  Age: 67 Year
  Sex: Female
  Weight: 81.6 kg

DRUGS (1)
  1. ARIMIDEX [Suspect]
     Route: 048
     Dates: start: 20091001

REACTIONS (3)
  - CRYING [None]
  - DECREASED APPETITE [None]
  - DEPRESSION [None]
